FAERS Safety Report 24343589 (Version 1)
Quarter: 2024Q3

REPORT INFORMATION
  Report Type: Report from Study
  Country: ES (occurrence: ES)
  Receive Date: 20240920
  Receipt Date: 20240920
  Transmission Date: 20241016
  Serious: Yes (Other)
  Sender: BAUSCH AND LOMB
  Company Number: ES-SA-2024SA258631

PATIENT
  Age: 67 Year
  Sex: Female

DRUGS (50)
  1. DEXAMETHASONE [Suspect]
     Active Substance: DEXAMETHASONE
     Indication: Plasma cell myeloma refractory
     Dosage: 20 MG, QW
     Route: 065
     Dates: start: 20240409, end: 20240430
  2. DEXAMETHASONE [Suspect]
     Active Substance: DEXAMETHASONE
     Dosage: 40 MG, QW
     Route: 065
     Dates: start: 20230913, end: 20230928
  3. DEXAMETHASONE [Suspect]
     Active Substance: DEXAMETHASONE
     Dosage: 40 MG, QW
     Route: 065
     Dates: start: 20230802, end: 20230802
  4. DEXAMETHASONE [Suspect]
     Active Substance: DEXAMETHASONE
     Dosage: 40 MG, QW
     Route: 065
     Dates: start: 20240305, end: 20240320
  5. DEXAMETHASONE [Suspect]
     Active Substance: DEXAMETHASONE
     Dosage: 20 MG, QW
     Route: 065
     Dates: start: 20240702, end: 20240717
  6. DEXAMETHASONE [Suspect]
     Active Substance: DEXAMETHASONE
     Dosage: 40 MG, QW
     Route: 065
     Dates: start: 20231016, end: 20231031
  7. DEXAMETHASONE [Suspect]
     Active Substance: DEXAMETHASONE
     Dosage: 20 MG, QW
     Route: 065
     Dates: start: 20240604, end: 20240619
  8. DEXAMETHASONE [Suspect]
     Active Substance: DEXAMETHASONE
     Dosage: 40 MG, QW
     Route: 065
     Dates: start: 20231113, end: 20231128
  9. DEXAMETHASONE [Suspect]
     Active Substance: DEXAMETHASONE
     Dosage: 20 MG, QW
     Route: 065
     Dates: start: 20240507, end: 20240522
  10. DEXAMETHASONE [Suspect]
     Active Substance: DEXAMETHASONE
     Dosage: 20 MG, QW
     Route: 065
     Dates: start: 20240730, end: 20240813
  11. DEXAMETHASONE [Suspect]
     Active Substance: DEXAMETHASONE
     Dosage: 40 MG, QW
     Route: 065
     Dates: start: 20240109, end: 20240124
  12. DEXAMETHASONE [Suspect]
     Active Substance: DEXAMETHASONE
     Dosage: 40 MG, QW
     Route: 065
     Dates: start: 20231212, end: 20231227
  13. DEXAMETHASONE [Suspect]
     Active Substance: DEXAMETHASONE
     Dosage: 40 MG, QW
     Route: 065
     Dates: start: 20240206, end: 20240221
  14. DEXAMETHASONE [Suspect]
     Active Substance: DEXAMETHASONE
     Dosage: 40 MG, QW
     Route: 065
     Dates: start: 20230816, end: 20230831
  15. ISATUXIMAB [Suspect]
     Active Substance: ISATUXIMAB
     Indication: Plasma cell myeloma refractory
     Dosage: 526 MG, BIW
     Route: 065
     Dates: start: 20240109, end: 20240123
  16. ISATUXIMAB [Suspect]
     Active Substance: ISATUXIMAB
     Dosage: 526 MG, QW
     Route: 065
     Dates: start: 20230802, end: 20230802
  17. ISATUXIMAB [Suspect]
     Active Substance: ISATUXIMAB
     Dosage: 526 MG, BIW
     Route: 065
     Dates: start: 20231212, end: 20231226
  18. ISATUXIMAB [Suspect]
     Active Substance: ISATUXIMAB
     Dosage: 526 MG, BIW
     Route: 065
     Dates: start: 20231113, end: 20231127
  19. ISATUXIMAB [Suspect]
     Active Substance: ISATUXIMAB
     Dosage: 526 MG, QW
     Route: 065
     Dates: start: 20230816, end: 20230906
  20. ISATUXIMAB [Suspect]
     Active Substance: ISATUXIMAB
     Dosage: 526 MG, BIW
     Route: 065
     Dates: start: 20240604, end: 20240618
  21. ISATUXIMAB [Suspect]
     Active Substance: ISATUXIMAB
     Dosage: 526 MG, BIW
     Route: 065
     Dates: start: 20240206, end: 20240220
  22. ISATUXIMAB [Suspect]
     Active Substance: ISATUXIMAB
     Dosage: 526 MG, BIW
     Route: 065
     Dates: start: 20240702, end: 20240716
  23. ISATUXIMAB [Suspect]
     Active Substance: ISATUXIMAB
     Dosage: 526 MG, BIW
     Route: 065
     Dates: start: 20231016, end: 20231030
  24. ISATUXIMAB [Suspect]
     Active Substance: ISATUXIMAB
     Dosage: 526 MG, BIW
     Route: 065
     Dates: start: 20240409, end: 20240423
  25. ISATUXIMAB [Suspect]
     Active Substance: ISATUXIMAB
     Dosage: 526 MG, BIW
     Route: 065
     Dates: start: 20240305, end: 20240319
  26. ISATUXIMAB [Suspect]
     Active Substance: ISATUXIMAB
     Dosage: 526 MG, BIW
     Route: 065
     Dates: start: 20240507, end: 20240521
  27. ISATUXIMAB [Suspect]
     Active Substance: ISATUXIMAB
     Dosage: 526 MG, BIW
     Dates: start: 20240730, end: 20240813
  28. ISATUXIMAB [Suspect]
     Active Substance: ISATUXIMAB
     Dosage: 526 MG, BIW
     Route: 065
     Dates: start: 20230913, end: 20230927
  29. CARFILZOMIB [Suspect]
     Active Substance: CARFILZOMIB
     Indication: Plasma cell myeloma refractory
     Dosage: 56 MG/M2, BIW
     Route: 065
     Dates: start: 20240507, end: 20240522
  30. CARFILZOMIB [Suspect]
     Active Substance: CARFILZOMIB
     Dosage: 56 MG/M2, BIW
     Route: 065
     Dates: start: 20231212, end: 20231227
  31. CARFILZOMIB [Suspect]
     Active Substance: CARFILZOMIB
     Dosage: 56 MG/M2, BIW
     Route: 065
     Dates: start: 20231016, end: 20231031
  32. CARFILZOMIB [Suspect]
     Active Substance: CARFILZOMIB
     Dosage: 29 MG, BIW
     Route: 065
     Dates: start: 20230816, end: 20230831
  33. CARFILZOMIB [Suspect]
     Active Substance: CARFILZOMIB
     Dosage: 29 MG, BIW
     Route: 065
     Dates: start: 20230802, end: 20230802
  34. CARFILZOMIB [Suspect]
     Active Substance: CARFILZOMIB
     Dosage: 56 MG/M2, BIW
     Route: 065
     Dates: start: 20240730, end: 20240814
  35. CARFILZOMIB [Suspect]
     Active Substance: CARFILZOMIB
     Dosage: 56 MG/M2, BIW
     Route: 065
     Dates: start: 20240409, end: 20240416
  36. CARFILZOMIB [Suspect]
     Active Substance: CARFILZOMIB
     Dosage: 56 MG/M2, BIW
     Route: 065
     Dates: start: 20240604, end: 20240619
  37. CARFILZOMIB [Suspect]
     Active Substance: CARFILZOMIB
     Dosage: 56 MG/M2, BIW
     Route: 065
     Dates: start: 20240109, end: 20240124
  38. CARFILZOMIB [Suspect]
     Active Substance: CARFILZOMIB
     Dosage: 56 MG/M2, BIW
     Route: 065
     Dates: start: 20240702, end: 20240717
  39. CARFILZOMIB [Suspect]
     Active Substance: CARFILZOMIB
     Dosage: 29 MG, BIW
     Route: 065
     Dates: start: 20230913, end: 20230928
  40. CARFILZOMIB [Suspect]
     Active Substance: CARFILZOMIB
     Dosage: 56 MG/M2, BIW
     Route: 065
     Dates: start: 20240305, end: 20240320
  41. CARFILZOMIB [Suspect]
     Active Substance: CARFILZOMIB
     Dosage: 56 MG/M2, BIW
     Route: 065
     Dates: start: 20240206, end: 20240221
  42. CARFILZOMIB [Suspect]
     Active Substance: CARFILZOMIB
     Dosage: 56 MG/M2, BIW
     Route: 065
     Dates: start: 20231113, end: 20231128
  43. AMLODIPINE [Concomitant]
     Active Substance: AMLODIPINE BESYLATE
     Indication: Hypertension
     Dosage: UNK
     Dates: start: 20240401
  44. ACYCLOVIR [Concomitant]
     Active Substance: ACYCLOVIR
     Indication: Product used for unknown indication
     Dosage: UNK
     Dates: start: 20220621
  45. ERYTHROPOIETIN [Concomitant]
     Active Substance: ERYTHROPOIETIN
     Indication: Product used for unknown indication
     Dosage: UNK
     Dates: start: 2023
  46. METOCLOPRAMIDE [Concomitant]
     Active Substance: METOCLOPRAMIDE
     Indication: Product used for unknown indication
     Dosage: UNK
     Dates: start: 20240318, end: 20240318
  47. LEVOTHYROXINE [Concomitant]
     Active Substance: LEVOTHYROXINE\LEVOTHYROXINE SODIUM
     Indication: Hypothyroidism
     Dosage: UNK
     Dates: start: 20210614
  48. LOSARTAN [Concomitant]
     Active Substance: LOSARTAN\LOSARTAN POTASSIUM
     Indication: Hypertension
     Dosage: UNK
     Dates: start: 20220405
  49. OMEPRAZOLE [Concomitant]
     Active Substance: OMEPRAZOLE
     Indication: Product used for unknown indication
     Dosage: UNK
     Dates: start: 20220621
  50. DEXAMETHASONE [Concomitant]
     Active Substance: DEXAMETHASONE
     Indication: Premedication
     Dosage: UNK UNK, QCY
     Dates: start: 20230816

REACTIONS (1)
  - Neutropenia [Not Recovered/Not Resolved]

NARRATIVE: CASE EVENT DATE: 20240827
